FAERS Safety Report 16978536 (Version 3)
Quarter: 2020Q4

REPORT INFORMATION
  Report Type: Report from Study
  Country: CA (occurrence: CA)
  Receive Date: 20191031
  Receipt Date: 20201231
  Transmission Date: 20210113
  Serious: Yes (Hospitalization, Other)
  Sender: FDA-Public Use
  Company Number: CA-TAKEDA-2016TUS023518

PATIENT
  Age: 75 Year
  Sex: Female

DRUGS (17)
  1. VITAMIN E NOS [Concomitant]
     Active Substance: .ALPHA.-TOCOPHEROL
     Dosage: UNK UNK, BID
  2. METHOTREXATE. [Concomitant]
     Active Substance: METHOTREXATE
     Dosage: 2.5 MILLIGRAM, 1/WEEK
  3. ENTOCORT [Concomitant]
     Active Substance: BUDESONIDE
     Dosage: UNK UNK, QD
  4. LOPERAMIDE [Concomitant]
     Active Substance: LOPERAMIDE
     Dosage: UNK UNK, QID
  5. IRON [Concomitant]
     Active Substance: IRON
     Dosage: UNK
  6. VEDOLIZUMAB [Suspect]
     Active Substance: VEDOLIZUMAB
     Indication: COLITIS ULCERATIVE
     Dosage: 300 MILLIGRAM
     Route: 042
     Dates: start: 20150721, end: 20161201
  7. VEDOLIZUMAB [Suspect]
     Active Substance: VEDOLIZUMAB
     Dosage: 300 MILLIGRAM, Q4WEEKS
     Route: 042
  8. CALCIUM [Concomitant]
     Active Substance: CALCIUM
     Dosage: UNK UNK, QD
  9. VITAMIN B12 [Concomitant]
     Active Substance: CYANOCOBALAMIN
     Dosage: UNK UNK, MONTHLY
     Route: 050
  10. VEDOLIZUMAB [Suspect]
     Active Substance: VEDOLIZUMAB
     Dosage: 300 MILLIGRAM, Q4WEEKS
     Route: 042
  11. RABEPRAZOLE [Concomitant]
     Active Substance: RABEPRAZOLE
     Dosage: 20 MILLIGRAM, QD
  12. VITAMIN D3 [Concomitant]
     Active Substance: CHOLECALCIFEROL
     Dosage: UNK UNK, TID
  13. PAMIDRONATE [Concomitant]
     Active Substance: PAMIDRONATE DISODIUM
     Indication: OSTEOPOROSIS
     Dosage: UNK UNK, Q3MONTHS
  14. STELARA [Concomitant]
     Active Substance: USTEKINUMAB
     Dosage: UNK UNK, Q4WEEKS
     Dates: start: 20140514
  15. VEDOLIZUMAB [Suspect]
     Active Substance: VEDOLIZUMAB
     Dosage: 300 MILLIGRAM, Q4WEEKS
     Route: 042
     Dates: start: 20170112
  16. VEDOLIZUMAB [Suspect]
     Active Substance: VEDOLIZUMAB
     Dosage: 300 MILLIGRAM, Q4WEEKS
     Route: 042
  17. GRAVOL [Concomitant]
     Active Substance: DIMENHYDRINATE
     Dosage: UNK

REACTIONS (7)
  - Off label use [Unknown]
  - Small intestinal obstruction [Recovered/Resolved]
  - Abdominal pain upper [Unknown]
  - Productive cough [Unknown]
  - Pneumonia [Unknown]
  - Nasopharyngitis [Recovered/Resolved with Sequelae]
  - Hyperhidrosis [Unknown]

NARRATIVE: CASE EVENT DATE: 201612
